FAERS Safety Report 6491578-5 (Version None)
Quarter: 2009Q4

REPORT INFORMATION
  Report Type: 
  Country: None (occurrence: None)
  Receive Date: 20091125
  Receipt Date: 20090306
  Transmission Date: 20100525
  Serious: Yes (Hospitalization)
  Sender: FDA-Public Use
  Company Number: 2009BH003868

PATIENT
  Age: 64 Year
  Sex: Female

DRUGS (1)
  1. DIANEAL [Suspect]
     Indication: RENAL FAILURE CHRONIC
     Dosage: ; UNK ; IP
     Route: 033
     Dates: end: 20090301

REACTIONS (2)
  - PERITONITIS [None]
  - TOOTH INFECTION [None]
